FAERS Safety Report 8832195 (Version 2)
Quarter: 2012Q4

REPORT INFORMATION
  Report Type: 
  Country: DE (occurrence: DE)
  Receive Date: 20121009
  Receipt Date: 20121102
  Transmission Date: 20130627
  Serious: Yes (Hospitalization, Other)
  Sender: FDA-Public Use
  Company Number: DE-ELI_LILLY_AND_COMPANY-DE201210002110

PATIENT
  Age: 50 Year
  Sex: Female

DRUGS (8)
  1. CYMBALTA [Suspect]
     Indication: DEPRESSION
     Dosage: 90 mg, UNK
     Dates: start: 20120804, end: 20120808
  2. CYMBALTA [Suspect]
     Dosage: 120 mg, UNK
     Dates: start: 20120809, end: 20120912
  3. NEXIUM [Concomitant]
     Dosage: UNK, unknown
  4. BISOPROLOL [Concomitant]
     Dosage: UNK, unknown
  5. CABASERIL [Concomitant]
     Dosage: 2 mg, UNK
  6. KREON [Concomitant]
  7. MELPERON [Concomitant]
  8. LORAZEPAM [Concomitant]

REACTIONS (7)
  - Pancreatitis chronic [Unknown]
  - Aspartate aminotransferase increased [Recovered/Resolved]
  - Diarrhoea [Recovered/Resolved]
  - Gamma-glutamyltransferase increased [Recovering/Resolving]
  - Alanine aminotransferase increased [Recovering/Resolving]
  - Blood albumin decreased [Recovering/Resolving]
  - Haemoglobin decreased [Recovered/Resolved]
